FAERS Safety Report 5321887-4 (Version None)
Quarter: 2007Q2

REPORT INFORMATION
  Report Type: 
  Country: None (occurrence: None)
  Receive Date: 20070510
  Receipt Date: 20070502
  Transmission Date: 20071010
  Serious: Yes (Hospitalization)
  Sender: FDA-Public Use
  Company Number: US-GENENTECH-240876

PATIENT
  Age: 49 Year
  Sex: Female
  Weight: 61.224 kg

DRUGS (6)
  1. BEVACIZUMAB [Suspect]
     Indication: RECTAL CANCER
     Dosage: 5 MG/KG, UNK
     Route: 042
     Dates: start: 20070309
  2. OXALIPLATIN [Suspect]
     Indication: RECTAL CANCER
     Dosage: 85 MG/M2, UNK
     Dates: start: 20070309
  3. OXALIPLATIN [Suspect]
     Dosage: 40 MG/M2, UNK
  4. LEUCOVORIN CALCIUM [Suspect]
     Indication: RECTAL CANCER
     Dosage: 400 MG/M2, UNK
     Dates: start: 20070309
  5. FLUOROURACIL [Suspect]
     Indication: RECTAL CANCER
     Dosage: 400 MG/M2, UNK
     Route: 040
     Dates: start: 20070309
  6. FLUOROURACIL [Suspect]
     Dosage: 2400 MG/M2, UNK
     Route: 042

REACTIONS (2)
  - DIARRHOEA [None]
  - ENTERITIS [None]
